FAERS Safety Report 7788202-8 (Version None)
Quarter: 2011Q3

REPORT INFORMATION
  Report Type: 
  Country: None (occurrence: None)
  Receive Date: 20110929
  Receipt Date: 20110929
  Transmission Date: 20111222
  Serious: No
  Sender: FDA-Public Use
  Company Number: None

PATIENT
  Age: 22 Year
  Sex: Male

DRUGS (1)
  1. HOMEOPATHIC REMEDY/COUGH SYRUP [Suspect]
     Indication: COUGH

REACTIONS (1)
  - RESPIRATORY DEPRESSION [None]
